FAERS Safety Report 7027301-5 (Version None)
Quarter: 2010Q4

REPORT INFORMATION
  Report Type: 
  Country: None (occurrence: None)
  Receive Date: 20101004
  Receipt Date: 20100924
  Transmission Date: 20110411
  Serious: Yes (Other)
  Sender: FDA-Public Use
  Company Number: BR-PFIZER INC-2010122104

PATIENT
  Age: 65 Year
  Sex: Female

DRUGS (9)
  1. CHAMPIX [Suspect]
     Indication: NICOTINE DEPENDENCE
     Dosage: UNK
     Route: 048
     Dates: start: 20091103
  2. CHAMPIX [Suspect]
     Indication: TOBACCO USER
     Dosage: 1 MG, 2X/DAY
     Route: 048
     Dates: start: 20100907
  3. MONOCORDIL RETARD [Concomitant]
     Dosage: UNK
  4. PANTOPRAZOLE [Concomitant]
     Dosage: UNK
  5. TICLID [Concomitant]
     Dosage: UNK
  6. DIOVAN HCT [Concomitant]
     Dosage: UNK
  7. LIPITOR [Concomitant]
     Dosage: UNK
  8. VASTAREL [Concomitant]
     Indication: CARDIAC DISORDER
     Dosage: UNK
  9. VASTAREL [Concomitant]
     Indication: BLOOD PRESSURE ABNORMAL

REACTIONS (2)
  - BLOOD PRESSURE DECREASED [None]
  - CHEST PAIN [None]
